FAERS Safety Report 24627842 (Version 1)
Quarter: 2024Q4

REPORT INFORMATION
  Report Type: Spontaneous
  Country: DE (occurrence: DE)
  Receive Date: 20241116
  Receipt Date: 20241116
  Transmission Date: 20250114
  Serious: Yes (Hospitalization)
  Sender: NOVARTIS
  Company Number: DE-002147023-NVSC2024DE204071

PATIENT
  Sex: Male
  Weight: 32 kg

DRUGS (5)
  1. ILARIS [Suspect]
     Active Substance: CANAKINUMAB
     Indication: Product used for unknown indication
     Dosage: 4 MG/KG (BODY WEIGHT)
     Route: 058
     Dates: start: 202109, end: 202305
  2. TOCILIZUMAB [Suspect]
     Active Substance: TOCILIZUMAB
     Indication: Product used for unknown indication
     Dosage: UNK
     Route: 042
     Dates: start: 202305, end: 202312
  3. METHOTREXATE [Concomitant]
     Active Substance: METHOTREXATE
     Indication: Product used for unknown indication
     Dosage: UNK
     Route: 065
  4. ADALIMUMAB [Concomitant]
     Active Substance: ADALIMUMAB
     Indication: Product used for unknown indication
     Dosage: UNK
     Route: 065
  5. PREDNISOLONE [Concomitant]
     Active Substance: PREDNISOLONE
     Indication: Product used for unknown indication
     Dosage: UNK
     Route: 065

REACTIONS (2)
  - Pulmonary fibrosis [Not Recovered/Not Resolved]
  - Hypersensitivity [Recovered/Resolved]
